FAERS Safety Report 17117285 (Version 2)
Quarter: 2019Q4

REPORT INFORMATION
  Report Type: Not Available
  Country: US (occurrence: US)
  Receive Date: 20191205
  Receipt Date: 20191226
  Transmission Date: 20200122
  Serious: Yes (Hospitalization)
  Sender: FDA-Public Use
  Company Number: US-NEUROCRINE BIOSCIENCES INC.-2019NBI03625

PATIENT
  Age: 62 Year
  Sex: Female

DRUGS (8)
  1. RESTORIL [Concomitant]
     Active Substance: TEMAZEPAM
  2. LAMICTAL [Concomitant]
     Active Substance: LAMOTRIGINE
  3. SEROQUEL XR [Concomitant]
     Active Substance: QUETIAPINE FUMARATE
  4. INGREZZA [Suspect]
     Active Substance: VALBENAZINE
     Route: 048
     Dates: start: 2019
  5. PROZAC [Concomitant]
     Active Substance: FLUOXETINE HYDROCHLORIDE
  6. ATIVAN [Concomitant]
     Active Substance: LORAZEPAM
     Dosage: 1 MG THRICE DAILY AS NEEDED
  7. INGREZZA [Suspect]
     Active Substance: VALBENAZINE
     Indication: TARDIVE DYSKINESIA
     Route: 048
     Dates: start: 20181108, end: 2019
  8. PRAZOSIN. [Concomitant]
     Active Substance: PRAZOSIN

REACTIONS (2)
  - Product dose omission [Unknown]
  - Hypersensitivity [Recovered/Resolved]

NARRATIVE: CASE EVENT DATE: 2019
